FAERS Safety Report 6210865-9 (Version None)
Quarter: 2009Q2

REPORT INFORMATION
  Report Type: 
  Country: None (occurrence: None)
  Receive Date: 20090601
  Receipt Date: 20090521
  Transmission Date: 20091009
  Serious: Yes (Other)
  Sender: FDA-Public Use
  Company Number: JP-PFIZER INC-2009210818

PATIENT
  Age: 18 Year

DRUGS (5)
  1. METHYLPREDNISOLONE ACETATE AND METHYLPREDNISOLONE SODIUM SUCCINATE AND [Suspect]
     Indication: IGA NEPHROPATHY
     Dosage: 500 UNK, UNK
     Dates: start: 20070807, end: 20070814
  2. MIZORIBINE [Suspect]
     Dosage: 150 MG, UNK, 4MG/KG
     Route: 048
  3. ANTITHROMBOTIC AGENTS [Suspect]
  4. DIPYRIDAMOLE [Suspect]
     Indication: IGA NEPHROPATHY
     Dosage: 150 MG, 2X/DAY
     Route: 048
     Dates: start: 20070807
  5. GASTER [Suspect]
     Indication: PROPHYLAXIS AGAINST GASTROINTESTINAL ULCER
     Dosage: 20 MG, UNK
     Route: 048
     Dates: start: 20070807, end: 20070816

REACTIONS (1)
  - ATRIAL FIBRILLATION [None]
